APPROVED DRUG PRODUCT: METHYLTESTOSTERONE
Active Ingredient: METHYLTESTOSTERONE
Strength: 10MG
Dosage Form/Route: CAPSULE;ORAL
Application: A084967 | Product #001
Applicant: HEATHER DRUG CO INC
Approved: Approved Prior to Jan 1, 1982 | RLD: No | RS: No | Type: DISCN